FAERS Safety Report 7292438-2 (Version None)
Quarter: 2011Q1

REPORT INFORMATION
  Report Type: 
  Country: None (occurrence: None)
  Receive Date: 20110215
  Receipt Date: 20110211
  Transmission Date: 20110831
  Serious: No
  Sender: FDA-Public Use
  Company Number: US-PFIZER INC-2011031528

PATIENT
  Sex: Female
  Weight: 57.596 kg

DRUGS (2)
  1. ADVIL [Suspect]
     Indication: COUGH
  2. ADVIL [Suspect]
     Indication: NASOPHARYNGITIS
     Dosage: 200 MG, EVERY 4 HRS
     Route: 048
     Dates: start: 20110208

REACTIONS (1)
  - DRUG INEFFECTIVE [None]
